FAERS Safety Report 4532164-3 (Version None)
Quarter: 2004Q4

REPORT INFORMATION
  Report Type: 
  Country: None (occurrence: None)
  Receive Date: 20041217
  Receipt Date: 20041203
  Transmission Date: 20050328
  Serious: Yes (Hospitalization)
  Sender: FDA-Public Use
  Company Number: DE-2004-036169

PATIENT
  Age: 43 Year
  Sex: Female

DRUGS (1)
  1. BETAFERON [Suspect]
     Dosage: SUBCUTANEOUS
     Route: 058
     Dates: start: 19980101

REACTIONS (1)
  - FAT NECROSIS [None]
